FAERS Safety Report 12099392 (Version 1)
Quarter: 2016Q1

REPORT INFORMATION
  Report Type: Spontaneous
  Country: US (occurrence: US)
  Receive Date: 20160222
  Receipt Date: 20160222
  Transmission Date: 20160526
  Serious: No
  Sender: FDA-Public Use
  Company Number: US-TEVA-597695USA

PATIENT
  Sex: Male

DRUGS (3)
  1. AMOXICILLIN. [Suspect]
     Active Substance: AMOXICILLIN
     Route: 065
  2. PROMETHAZINE W/CODEINE [Suspect]
     Active Substance: CODEINE\PROMETHAZINE
     Dosage: COUPLE OF SIPS
     Route: 048
  3. ROBITUSSIN PEAK COLD COUGH PLUS CHEST CONGESTION DM [Suspect]
     Active Substance: DEXTROMETHORPHAN HYDROBROMIDE\GUAIFENESIN
     Dosage: ONE TASTE
     Route: 048

REACTIONS (2)
  - Throat tightness [Recovered/Resolved]
  - Adverse event [Unknown]
